FAERS Safety Report 5610851-3 (Version None)
Quarter: 2008Q1

REPORT INFORMATION
  Report Type: 
  Country: None (occurrence: None)
  Receive Date: 20080201
  Receipt Date: 20080122
  Transmission Date: 20080703
  Serious: Yes (Other)
  Sender: FDA-Public Use
  Company Number: US-JNJFOC-20071202280

PATIENT
  Sex: Female
  Weight: 74.84 kg

DRUGS (5)
  1. DURAGESIC-100 [Suspect]
     Indication: PAIN
     Route: 062
  2. AVELOX [Suspect]
     Indication: INFECTION
     Route: 048
  3. METHADONE HCL [Concomitant]
     Route: 048
  4. FENTORA [Concomitant]
     Indication: PAIN
     Route: 060
  5. PROZAC [Concomitant]
     Route: 048

REACTIONS (11)
  - INJURY [None]
  - JOINT ARTHROPLASTY [None]
  - KNEE OPERATION [None]
  - MALAISE [None]
  - MENISCUS REMOVAL [None]
  - NAUSEA [None]
  - PRURITUS [None]
  - STAPHYLOCOCCAL INFECTION [None]
  - SURGERY [None]
  - TRANSPLANT [None]
  - WRONG TECHNIQUE IN DRUG USAGE PROCESS [None]
